FAERS Safety Report 4733365-1 (Version None)
Quarter: 2005Q3

REPORT INFORMATION
  Report Type: 
  Country: None (occurrence: None)
  Receive Date: 20050801
  Receipt Date: 20050801
  Transmission Date: 20060218
  Serious: Yes (Hospitalization)
  Sender: FDA-Public Use
  Company Number: None

PATIENT
  Age: 78 Year
  Sex: Male

DRUGS (10)
  1. OXYCODONE [Suspect]
     Indication: PAIN
     Dosage: 80 MG Q8 H PRN
     Dates: start: 20050523
  2. FUROSEMIDE [Concomitant]
  3. GLIPIZIDE [Concomitant]
  4. ISOSORBIDE [Concomitant]
  5. LISINOPRIL [Concomitant]
  6. METOPROLOL [Concomitant]
  7. TERAZOSIN [Concomitant]
  8. AMIODARONE [Concomitant]
  9. LEVOTHYROXINE [Concomitant]
  10. ZOLOFT [Concomitant]

REACTIONS (3)
  - APNOEA [None]
  - BRADYCARDIA [None]
  - HYPOTENSION [None]
